FAERS Safety Report 6695844-X (Version None)
Quarter: 2010Q2

REPORT INFORMATION
  Report Type: 
  Country: None (occurrence: None)
  Receive Date: 20100421
  Receipt Date: 20100412
  Transmission Date: 20101027
  Serious: Yes (Other)
  Sender: FDA-Public Use
  Company Number: 1000013286

PATIENT
  Age: 90 Year
  Sex: Female
  Weight: 40 kg

DRUGS (6)
  1. ESCITALOPRAM [Suspect]
     Indication: ANXIETY
     Dosage: 5 MG (5 MG, 1 IN 1 D), ORAL
     Route: 048
     Dates: start: 20091201, end: 20100401
  2. ESCITALOPRAM [Suspect]
     Indication: ANXIETY
     Dosage: 2.5 MG (2.5 MG, 1 IN 1 D), ORAL
     Route: 048
     Dates: start: 20100401
  3. TRINITRINE [Concomitant]
  4. VERAPAMIL [Concomitant]
  5. TRIMETAZIDINE [Concomitant]
  6. TRAMADOL [Concomitant]

REACTIONS (3)
  - ABNORMAL BEHAVIOUR [None]
  - HALLUCINATION, VISUAL [None]
  - SOMNOLENCE [None]
